FAERS Safety Report 9818571 (Version 1)
Quarter: 2014Q1

REPORT INFORMATION
  Report Type: Spontaneous
  Country: US (occurrence: None)
  Receive Date: 20140114
  Receipt Date: 20140114
  Transmission Date: 20141002
  Serious: Yes (Death)
  Sender: FDA-Public Use
  Company Number: None

PATIENT
  Age: 17 Year
  Sex: Male
  Weight: 21.3 kg

DRUGS (2)
  1. LONAFARNIB [Suspect]
     Indication: PROGERIA
     Route: 048
     Dates: end: 20140110
  2. PRAVASTATIN [Suspect]
     Indication: CARDIAC VENTRICULAR DISORDER
     Route: 048
     Dates: start: 20090826, end: 20140110

REACTIONS (8)
  - Cardiac arrest [None]
  - Cardiac ventricular disorder [None]
  - Condition aggravated [None]
  - Aortic stenosis [None]
  - Cardiac failure congestive [None]
  - Mitral valve incompetence [None]
  - Mitral valve stenosis [None]
  - Pulmonary hypertension [None]
